FAERS Safety Report 9224539 (Version 2)
Quarter: 2013Q2

REPORT INFORMATION
  Report Type: Spontaneous
  Country: CH (occurrence: CH)
  Receive Date: 20130411
  Receipt Date: 20130426
  Transmission Date: 20140414
  Serious: Yes (Hospitalization)
  Sender: FDA-Public Use
  Company Number: CH-JNJFOC-20130402312

PATIENT
  Sex: Female

DRUGS (3)
  1. XEPLION [Suspect]
     Indication: SCHIZOPHRENIA
     Route: 030
     Dates: start: 20120605
  2. ORFIRIL [Concomitant]
     Route: 065
  3. TEMESTA [Concomitant]
     Route: 065

REACTIONS (3)
  - Condition aggravated [Unknown]
  - Insomnia [Unknown]
  - Speech disorder [Unknown]
